FAERS Safety Report 8058187-8 (Version None)
Quarter: 2012Q1

REPORT INFORMATION
  Report Type: 
  Country: None (occurrence: None)
  Receive Date: 20120112
  Receipt Date: 20120105
  Transmission Date: 20120608
  Serious: Yes (Other)
  Sender: FDA-Public Use
  Company Number: 2012SP000836

PATIENT
  Age: 19 Year
  Sex: Female

DRUGS (1)
  1. NEXPLANON [Suspect]
     Indication: PRODUCT USED FOR UNKNOWN INDICATION
     Dosage: 68 MG; SBDE
     Route: 059
     Dates: start: 20111111

REACTIONS (3)
  - LOCAL SWELLING [None]
  - CONTUSION [None]
  - LOWER EXTREMITY MASS [None]
